FAERS Safety Report 7864139-0 (Version None)
Quarter: 2011Q4

REPORT INFORMATION
  Report Type: 
  Country: None (occurrence: None)
  Receive Date: 20111028
  Receipt Date: 20111021
  Transmission Date: 20120403
  Serious: Yes (Hospitalization)
  Sender: FDA-Public Use
  Company Number: US-VERTEX PHARMACEUTICALS INC.-AE-2011-002583

PATIENT
  Age: 54 Year
  Sex: Female
  Weight: 93 kg

DRUGS (8)
  1. LORAZEPAM [Concomitant]
  2. INCIVEK [Suspect]
     Indication: HEPATITIS C
     Route: 048
     Dates: start: 20110915, end: 20111020
  3. METOPROLOL TARTRATE [Concomitant]
  4. METFORMIN HCL [Concomitant]
     Route: 048
  5. ZOFRAN [Concomitant]
  6. LOSARTAN POTASSIUM [Concomitant]
  7. RIBAVIRIN [Concomitant]
     Indication: HEPATITIS C
     Route: 048
     Dates: start: 20110915, end: 20111020
  8. PEGASYS [Concomitant]
     Indication: HEPATITIS C
     Route: 058
     Dates: end: 20111020

REACTIONS (5)
  - ANAEMIA [None]
  - PULMONARY EMBOLISM [None]
  - DYSPNOEA [None]
  - RETCHING [None]
  - NAUSEA [None]
